FAERS Safety Report 6700501-7 (Version None)
Quarter: 2010Q2

REPORT INFORMATION
  Report Type: 
  Country: None (occurrence: None)
  Receive Date: 20100428
  Receipt Date: 20100423
  Transmission Date: 20101027
  Serious: Yes (Death, Hospitalization)
  Sender: FDA-Public Use
  Company Number: A0790535A

PATIENT
  Age: 59 Year
  Sex: Female
  Weight: 97.7 kg

DRUGS (14)
  1. AVANDIA [Suspect]
     Dosage: 4MG TWICE PER DAY
     Route: 048
     Dates: start: 20020201, end: 20070124
  2. GLUCOPHAGE [Concomitant]
  3. XOPENEX [Concomitant]
  4. ATENOLOL [Concomitant]
  5. LEVOTHROID [Concomitant]
  6. ACCUPRIL [Concomitant]
  7. LIPITOR [Concomitant]
  8. GLUCOTROL [Concomitant]
  9. PAXIL [Concomitant]
  10. NEURONTIN [Concomitant]
  11. TOPROL-XL [Concomitant]
  12. PRILOSEC [Concomitant]
  13. LANTUS [Concomitant]
  14. DUONEB [Concomitant]

REACTIONS (4)
  - ARRHYTHMIA [None]
  - ATRIAL FIBRILLATION [None]
  - CARDIAC FAILURE CONGESTIVE [None]
  - CORONARY ARTERY OCCLUSION [None]
